FAERS Safety Report 5891482-7 (Version None)
Quarter: 2008Q3

REPORT INFORMATION
  Report Type: 
  Country: None (occurrence: None)
  Receive Date: 20080922
  Receipt Date: 20080915
  Transmission Date: 20090109
  Serious: Yes (Hospitalization)
  Sender: FDA-Public Use
  Company Number: DE-TEVA-177462ISR

PATIENT
  Age: 60 Year
  Sex: Female

DRUGS (2)
  1. CITALOPRAM HYDROBROMIDE [Suspect]
     Indication: DEPRESSION
  2. HERBAL PREPARATION [Interacting]

REACTIONS (4)
  - ANXIETY [None]
  - COGNITIVE DISORDER [None]
  - DEPRESSION [None]
  - DRUG INTERACTION [None]
